FAERS Safety Report 18600183 (Version 1)
Quarter: 2020Q4

REPORT INFORMATION
  Report Type: Report from Study
  Country: IE (occurrence: IE)
  Receive Date: 20201210
  Receipt Date: 20201210
  Transmission Date: 20210114
  Serious: Yes (Other)
  Sender: FDA-Public Use
  Company Number: IE-JNJFOC-20201211466

PATIENT
  Age: 80 Year
  Sex: Male

DRUGS (6)
  1. FIRMAGON [Concomitant]
     Active Substance: DEGARELIX ACETATE
  2. ABIRATERONE ACETATE. [Suspect]
     Active Substance: ABIRATERONE ACETATE
     Indication: PROSTATE CANCER
     Route: 048
     Dates: start: 20201102
  3. PREDNISONE. [Concomitant]
     Active Substance: PREDNISONE
  4. BISOPROLOL [Concomitant]
     Active Substance: BISOPROLOL
     Route: 065
  5. COMBODART [Concomitant]
     Active Substance: DUTASTERIDE\TAMSULOSIN
  6. ALLOPURINOL. [Concomitant]
     Active Substance: ALLOPURINOL
     Route: 065

REACTIONS (1)
  - Lower respiratory tract infection [Recovering/Resolving]

NARRATIVE: CASE EVENT DATE: 20201110
